FAERS Safety Report 21583076 (Version 2)
Quarter: 2022Q4

REPORT INFORMATION
  Report Type: Spontaneous
  Country: US (occurrence: US)
  Receive Date: 20221111
  Receipt Date: 20221124
  Transmission Date: 20230113
  Serious: Yes (Other)
  Sender: FDA-Public Use
  Company Number: US-drreddys-SPO/USA/22/0157039

PATIENT
  Age: 37 Year
  Sex: Female

DRUGS (4)
  1. HEPARIN SODIUM [Suspect]
     Active Substance: HEPARIN SODIUM
     Indication: Pulmonary embolism
     Dosage: EMPIRICALLY ON A HEPARIN DRIP
     Route: 041
  2. HEPARIN SODIUM [Suspect]
     Active Substance: HEPARIN SODIUM
     Indication: Evidence based treatment
     Dosage: BOLUS
     Route: 040
  3. HEPARIN SODIUM [Suspect]
     Active Substance: HEPARIN SODIUM
     Dosage: INCREASED INFUSION RATE
  4. HEPARIN SODIUM [Suspect]
     Active Substance: HEPARIN SODIUM
     Dosage: DRIP LOW DOSE
     Route: 041

REACTIONS (2)
  - Vulval haemorrhage [Recovered/Resolved]
  - Heparin-induced thrombocytopenia [Unknown]
